FAERS Safety Report 5901805-8 (Version None)
Quarter: 2008Q3

REPORT INFORMATION
  Report Type: 
  Country: None (occurrence: None)
  Receive Date: 20080925
  Receipt Date: 20080912
  Transmission Date: 20090109
  Serious: Yes (Life-Threatening, Hospitalization)
  Sender: FDA-Public Use
  Company Number: 2008AP001890

PATIENT
  Age: 73 Year
  Sex: Female

DRUGS (12)
  1. CITALOPRAM HYDROBROMIDE [Suspect]
     Indication: DEPRESSION
     Dosage: 40 MG; QD;
  2. FLUCONAZOLE [Suspect]
     Dosage: 100 MG; QD;
  3. IFOSFAMIDE [Suspect]
  4. FLUCONAZOLE [Concomitant]
  5. CLONAZEPAM [Concomitant]
  6. LEVOFLOXACIN [Concomitant]
  7. METOPROLOL TARTRATE [Concomitant]
  8. ACYCLOVIR SODIUM [Concomitant]
  9. VANCOMYCIN HYDROCHLORIDE [Concomitant]
  10. AMLODIPINE [Concomitant]
  11. VALSARTAN [Concomitant]
  12. PANTOPRAZOLE SODIUM [Concomitant]

REACTIONS (21)
  - ASTERIXIS [None]
  - BLOOD CALCIUM DECREASED [None]
  - BLOOD CHLORIDE DECREASED [None]
  - BLOOD GLUCOSE INCREASED [None]
  - BLOOD PHOSPHORUS DECREASED [None]
  - BLOOD POTASSIUM DECREASED [None]
  - BLOOD PRESSURE INCREASED [None]
  - BLOOD SODIUM DECREASED [None]
  - CEREBRAL ATROPHY [None]
  - DELIRIUM [None]
  - DISORIENTATION [None]
  - DRUG INTERACTION [None]
  - LETHARGY [None]
  - MENINGIOMA [None]
  - MOOD ALTERED [None]
  - PANCYTOPENIA [None]
  - PROTHROMBIN LEVEL INCREASED [None]
  - PROTHROMBIN TIME PROLONGED [None]
  - PSYCHOMOTOR RETARDATION [None]
  - SEROTONIN SYNDROME [None]
  - SOMNOLENCE [None]
